FAERS Safety Report 22777165 (Version 4)
Quarter: 2023Q4

REPORT INFORMATION
  Report Type: Report from Study
  Country: NL (occurrence: NL)
  Receive Date: 20230802
  Receipt Date: 20231103
  Transmission Date: 20240109
  Serious: Yes (Hospitalization)
  Sender: FDA-Public Use
  Company Number: NL-SERVIER-S23008478

PATIENT

DRUGS (2)
  1. PANTOPRAZOLE [Concomitant]
     Active Substance: PANTOPRAZOLE
     Indication: Dyspepsia
     Dosage: UNK, QD
     Route: 048
     Dates: start: 20230710, end: 20230807
  2. NADROPARIN [Concomitant]
     Active Substance: NADROPARIN
     Indication: Deep vein thrombosis
     Dosage: UNK, QD
     Route: 058
     Dates: start: 20230717

REACTIONS (2)
  - Nausea [Recovered/Resolved]
  - Vomiting [Recovered/Resolved]

NARRATIVE: CASE EVENT DATE: 20230722
